FAERS Safety Report 24779403 (Version 3)
Quarter: 2025Q1

REPORT INFORMATION
  Report Type: Spontaneous
  Country: US (occurrence: US)
  Receive Date: 20241226
  Receipt Date: 20250210
  Transmission Date: 20250408
  Serious: No
  Sender: PFIZER
  Company Number: US-PFIZER INC-202400332063

PATIENT
  Age: 72 Year
  Sex: Female
  Weight: 70.31 kg

DRUGS (5)
  1. MEKTOVI [Suspect]
     Active Substance: BINIMETINIB
     Indication: Breast cancer metastatic
     Dosage: UNK, DAILY (90 UNIT UNKNOWN)
     Dates: start: 20241001
  2. MEKTOVI [Suspect]
     Active Substance: BINIMETINIB
     Dosage: UNK, 2X/DAY (30 AND 30 UNIT UNKNOWN, TWICE A DAY)
     Dates: end: 20241220
  3. CYMBALTA [Concomitant]
     Active Substance: DULOXETINE HYDROCHLORIDE
     Indication: Anxiety
     Dosage: 20 MG, 1X/DAY
  4. CELEBREX [Concomitant]
     Active Substance: CELECOXIB
     Indication: Pain
     Dosage: UNK, 2X/DAY (200 UNIT UNKNOWN)
  5. FULVESTRANT [Concomitant]
     Active Substance: FULVESTRANT
     Indication: Breast cancer metastatic
     Dosage: 2 DF, MONTHLY (TWO INJECTIONS ONCE A MONTH)

REACTIONS (6)
  - Lymphoedema [Not Recovered/Not Resolved]
  - Condition aggravated [Not Recovered/Not Resolved]
  - Laryngitis viral [Unknown]
  - Neoplasm progression [Unknown]
  - Rash [Unknown]
  - Off label use [Unknown]

NARRATIVE: CASE EVENT DATE: 20241001
